FAERS Safety Report 23232585 (Version 1)
Quarter: 2023Q4

REPORT INFORMATION
  Report Type: Spontaneous
  Country: GB (occurrence: GB)
  Receive Date: 20231128
  Receipt Date: 20231128
  Transmission Date: 20240109
  Serious: Yes (Other)
  Sender: FDA-Public Use
  Company Number: None

PATIENT
  Sex: Female

DRUGS (1)
  1. OZEMPIC [Suspect]
     Active Substance: SEMAGLUTIDE
     Indication: Product used for unknown indication
     Dosage: 1 MG

REACTIONS (6)
  - Hyperhidrosis [Unknown]
  - Cold sweat [Unknown]
  - Asthenia [Unknown]
  - Disorientation [Unknown]
  - Presyncope [Unknown]
  - Malaise [Unknown]
